FAERS Safety Report 15462136 (Version 1)
Quarter: 2018Q4

REPORT INFORMATION
  Report Type: Spontaneous
  Country: GB (occurrence: GB)
  Receive Date: 20181004
  Receipt Date: 20181004
  Transmission Date: 20190204
  Serious: Yes (Other)
  Sender: FDA-Public Use
  Company Number: GB-BRISTOL-MYERS SQUIBB COMPANY-BMS-2018-089344

PATIENT
  Age: 58 Year
  Sex: Female
  Weight: 71.21 kg

DRUGS (1)
  1. METFORMIN HYDROCHLORIDE. [Suspect]
     Active Substance: METFORMIN HYDROCHLORIDE
     Indication: DIABETES MELLITUS
     Dosage: 500 MG, UNK
     Route: 048
     Dates: start: 20180418, end: 20180907

REACTIONS (3)
  - Headache [Not Recovered/Not Resolved]
  - Decreased interest [Not Recovered/Not Resolved]
  - Amnesia [Not Recovered/Not Resolved]
